FAERS Safety Report 9553447 (Version 2)
Quarter: 2013Q4

REPORT INFORMATION
  Report Type: Spontaneous
  Country: RO (occurrence: RO)
  Receive Date: 20130925
  Receipt Date: 20131028
  Transmission Date: 20140711
  Serious: Yes (Disabling)
  Sender: FDA-Public Use
  Company Number: RO-PFIZER INC-2013274797

PATIENT
  Age: 80 Year
  Sex: Male
  Weight: 100 kg

DRUGS (5)
  1. INSPRA [Suspect]
     Indication: CARDIAC FAILURE CONGESTIVE
     Dosage: 25 MG, ONCE DAILY
  2. INSPRA [Suspect]
     Indication: CARDIOMYOPATHY
     Dosage: 50 MG PER DAY FOR ONE MONTH AND THEN 25 MG PER DAY
     Route: 048
     Dates: start: 20130713
  3. TROMBOSTOP [Concomitant]
     Indication: CARDIOMYOPATHY
     Dosage: 2 MG, 1X/DAY, FOR THREE YEARS
     Route: 048
  4. FUROSEMID [Concomitant]
     Indication: CARDIAC FAILURE
     Dosage: 40 MG, 1X/DAY
     Route: 048
     Dates: start: 20130713
  5. TEOTARD [Concomitant]
     Indication: CHRONIC OBSTRUCTIVE PULMONARY DISEASE
     Dosage: 200 MG, 2X/DAY, FOR 3 YEARS
     Route: 048

REACTIONS (3)
  - Thinking abnormal [Recovered/Resolved]
  - Disorientation [Recovered/Resolved]
  - Psychomotor hyperactivity [Recovered/Resolved]
